FAERS Safety Report 16405230 (Version 1)
Quarter: 2019Q2

REPORT INFORMATION
  Report Type: Report from Study
  Country: GB (occurrence: GB)
  Receive Date: 20190607
  Receipt Date: 20190607
  Transmission Date: 20190711
  Serious: Yes (Other)
  Sender: FDA-Public Use
  Company Number: GB-EMD SERONO-9059733

PATIENT
  Age: 40 Year
  Sex: Female

DRUGS (1)
  1. MAVENCLAD [Suspect]
     Active Substance: CLADRIBINE
     Indication: MULTIPLE SCLEROSIS
     Dosage: FIRST WEEK THERAPY: TWO TABLETS (EACH OF 10 MG) ON DAYS 1 TO 2 AND ONE TABLET ON DAYS 3 TO 5.
     Route: 048
     Dates: start: 20181119

REACTIONS (6)
  - Lower respiratory tract infection [Not Recovered/Not Resolved]
  - Hypophagia [Unknown]
  - Pain [Unknown]
  - Nausea [Unknown]
  - Aphonia [Not Recovered/Not Resolved]
  - Fatigue [Unknown]

NARRATIVE: CASE EVENT DATE: 201811
